FAERS Safety Report 5448443-1 (Version None)
Quarter: 2007Q3

REPORT INFORMATION
  Report Type: 
  Country: None (occurrence: None)
  Receive Date: 20070906
  Receipt Date: 20070829
  Transmission Date: 20080115
  Serious: Yes (Death, Hospitalization)
  Sender: FDA-Public Use
  Company Number: CLOF-10654

PATIENT
  Sex: Male

DRUGS (3)
  1. CLOFARABINE. MFR: GENZYME [Suspect]
     Indication: CHRONIC MYELOID LEUKAEMIA
     Dosage: 168.8 MG IV
     Route: 042
     Dates: start: 20061219, end: 20061224
  2. BUSULFAN [Suspect]
     Indication: CHRONIC MYELOID LEUKAEMIA
     Dosage: 877.5 MG IV
     Route: 042
     Dates: start: 20061219, end: 20061224
  3. FLUDARABINE PHOSPHATE [Suspect]
     Indication: CHRONIC MYELOID LEUKAEMIA
     Dosage: 168.8 MG IV
     Route: 042
     Dates: start: 20061219, end: 20061224

REACTIONS (14)
  - ACUTE GRAFT VERSUS HOST DISEASE IN LIVER [None]
  - BACTERAEMIA [None]
  - BRAIN OEDEMA [None]
  - CARDIAC ARREST [None]
  - CYSTITIS HAEMORRHAGIC [None]
  - EYE DISORDER [None]
  - GASTROINTESTINAL DISORDER [None]
  - HYPOTENSION [None]
  - MENTAL STATUS CHANGES [None]
  - MYOCARDIAL INFARCTION [None]
  - MYOCARDIAL ISCHAEMIA [None]
  - PYREXIA [None]
  - SKIN DISORDER [None]
  - STEM CELL TRANSPLANT [None]
